FAERS Safety Report 8335186-X (Version None)
Quarter: 2012Q2

REPORT INFORMATION
  Report Type: 
  Country: None (occurrence: None)
  Receive Date: 20120503
  Receipt Date: 20120424
  Transmission Date: 20120825
  Serious: Yes (Hospitalization)
  Sender: FDA-Public Use
  Company Number: US-JNJFOC-20120402648

PATIENT
  Sex: Male
  Weight: 79.38 kg

DRUGS (3)
  1. LISINOPRIL [Concomitant]
  2. XARELTO [Suspect]
     Indication: THROMBOSIS PROPHYLAXIS
     Route: 048
     Dates: start: 20120321, end: 20120322
  3. PERCOCET [Concomitant]

REACTIONS (4)
  - PROCEDURAL SITE REACTION [None]
  - HAEMATOMA [None]
  - HAEMORRHAGE [None]
  - DIZZINESS [None]
